FAERS Safety Report 19958562 (Version 1)
Quarter: 2021Q4

REPORT INFORMATION
  Report Type: Spontaneous
  Country: US (occurrence: US)
  Receive Date: 20211015
  Receipt Date: 20211015
  Transmission Date: 20220303
  Serious: Yes (Hospitalization, Other)
  Sender: FDA-Public Use
  Company Number: US-SA-SAC20211013000613

PATIENT
  Age: 60 Year
  Sex: Female

DRUGS (1)
  1. DUPIXENT [Suspect]
     Active Substance: DUPILUMAB
     Indication: Asthma
     Dosage: 200 MG, QOW, 1.14 ML SYRINGE
     Route: 058
     Dates: start: 20210904

REACTIONS (4)
  - Pneumonia [Not Recovered/Not Resolved]
  - General symptom [Not Recovered/Not Resolved]
  - Impaired quality of life [Not Recovered/Not Resolved]
  - Therapeutic product ineffective [Unknown]
